FAERS Safety Report 14728509 (Version 2)
Quarter: 2018Q2

REPORT INFORMATION
  Report Type: Report from Study
  Country: AU (occurrence: AU)
  Receive Date: 20180406
  Receipt Date: 20180505
  Transmission Date: 20180711
  Serious: Yes (Other)
  Sender: FDA-Public Use
  Company Number: AU-TEVA-2018-AU-876065

PATIENT
  Age: 62 Year
  Sex: Female

DRUGS (3)
  1. ENDEP [Concomitant]
     Active Substance: AMITRIPTYLINE HYDROCHLORIDE
  2. BETMIGA 50MG [Concomitant]
  3. COPAXONE [Suspect]
     Active Substance: GLATIRAMER ACETATE
     Indication: MULTIPLE SCLEROSIS
     Route: 058
     Dates: start: 20160726, end: 20180326

REACTIONS (10)
  - Eye swelling [Recovering/Resolving]
  - Anaphylactic shock [Recovered/Resolved]
  - Pain [Recovered/Resolved]
  - Nausea [Recovering/Resolving]
  - Headache [Recovering/Resolving]
  - Fatigue [Unknown]
  - Swollen tongue [Recovering/Resolving]
  - Immediate post-injection reaction [Recovering/Resolving]
  - Lip swelling [Recovering/Resolving]
  - Respiratory arrest [Recovered/Resolved]

NARRATIVE: CASE EVENT DATE: 20180326
